FAERS Safety Report 14424665 (Version 2)
Quarter: 2018Q1

REPORT INFORMATION
  Report Type: Spontaneous
  Country: US (occurrence: US)
  Receive Date: 20180123
  Receipt Date: 20180202
  Transmission Date: 20180509
  Serious: Yes (Life-Threatening, Hospitalization)
  Sender: FDA-Public Use
  Company Number: US-PFIZER INC-2018028324

PATIENT
  Age: 42 Year
  Sex: Male

DRUGS (24)
  1. MORPHINE SULFATE. [Suspect]
     Active Substance: MORPHINE SULFATE
     Indication: MUSCULOSKELETAL PAIN
     Dosage: UNK (TITRATED)
     Route: 037
  2. GABAPENTIN. [Concomitant]
     Active Substance: GABAPENTIN
     Indication: WOUND
     Dosage: 6 MG, 3X/DAY (IN METERED 1 ML DOSES)
     Route: 061
  3. TETRACAINE. [Concomitant]
     Active Substance: TETRACAINE
     Indication: WOUND
     Dosage: 7 MG PER 120 ML APPLIED THREE TIMES DAILY, IN METERED 1 ML DOSES
     Route: 061
  4. ALPRAZOLAM. [Concomitant]
     Active Substance: ALPRAZOLAM
     Indication: ANXIETY
     Dosage: 4 MG, EVERY 4 HRS (Q 4 HOURS AS NEEDED)
  5. DEXAMETHASONE. [Concomitant]
     Active Substance: DEXAMETHASONE
     Indication: BONE PAIN
     Dosage: 8 MG, DAILY
     Route: 048
  6. CLONIDINE. [Concomitant]
     Active Substance: CLONIDINE
     Indication: WOUND
     Dosage: 0.2 MG, 3X/DAY (IN METERED 1 ML DOSES)
     Route: 061
  7. DIAZEPAM. [Concomitant]
     Active Substance: DIAZEPAM
     Indication: DELIRIUM TREMENS
     Dosage: 5 MG, ALTERNATING EVERY 2 HOURS
     Route: 048
  8. MORPHINE SULFATE. [Suspect]
     Active Substance: MORPHINE SULFATE
     Dosage: 0.2 MG/H
     Route: 037
  9. METHADONE [Suspect]
     Active Substance: METHADONE HYDROCHLORIDE
     Indication: NEURALGIA
     Dosage: 80 MG, 3X/DAY (Q 8 HOURS)
     Route: 048
  10. SERTRALINE [Concomitant]
     Active Substance: SERTRALINE HYDROCHLORIDE
     Indication: DEPRESSION
     Dosage: 150 MG, DAILY
  11. KETOPROFEN. [Concomitant]
     Active Substance: KETOPROFEN
     Indication: WOUND
     Dosage: 120 MG, 3X/DAY (IN METERED 1 ML DOSES)
     Route: 061
  12. OXYGEN. [Concomitant]
     Active Substance: OXYGEN
     Indication: HYPOXIA
     Dosage: 2.5 L/MIN INITIATED VIA MASK
     Route: 045
  13. LORAZEPAM. [Concomitant]
     Active Substance: LORAZEPAM
     Indication: DELIRIUM TREMENS
     Dosage: 1 MG, ALTERNATING EVERY 2 HOURS
     Route: 048
  14. HYDROMORPHONE HYDROCHLORIDE. [Suspect]
     Active Substance: HYDROMORPHONE HYDROCHLORIDE
     Dosage: REDUCE BY 10% DAILY WITH THE GOAL OF DISCONTINUING IT
     Route: 042
  15. METHADONE [Suspect]
     Active Substance: METHADONE HYDROCHLORIDE
     Indication: MUSCULOSKELETAL PAIN
     Dosage: 100 MG, 3X/DAY (INCREASING THE METHADONE TO 100 MG Q 8 HOURS)
     Route: 048
  16. DEXAMETHASONE. [Concomitant]
     Active Substance: DEXAMETHASONE
     Indication: PSYCHOMOTOR HYPERACTIVITY
     Dosage: 10 MG, DAILY (INCREASED TO 10 MG/DAY)
     Route: 048
  17. DEXAMETHASONE. [Concomitant]
     Active Substance: DEXAMETHASONE
     Indication: NEURALGIA
     Dosage: 12 MG, DAILY (AGAIN INCREASED TO A FINAL DOSE OF 12 MG/DAY)
     Route: 048
  18. HYDROMORPHONE HYDROCHLORIDE. [Suspect]
     Active Substance: HYDROMORPHONE HYDROCHLORIDE
     Indication: MUSCULOSKELETAL PAIN
     Dosage: 75 MG/H BASE RATE
     Route: 042
  19. HYDROMORPHONE HYDROCHLORIDE. [Suspect]
     Active Substance: HYDROMORPHONE HYDROCHLORIDE
     Dosage: INCREASING BACK TO 75 MG/H
     Route: 042
  20. HYDROMORPHONE HYDROCHLORIDE. [Suspect]
     Active Substance: HYDROMORPHONE HYDROCHLORIDE
     Dosage: DECREASED BY 30% IMMEDIATELY, SUBSEQUENT 30% EVERY 24 HOURS, INTENDING TO DISCONTINUE WITHIN 3 DAYS
     Route: 042
  21. DIAZEPAM. [Concomitant]
     Active Substance: DIAZEPAM
     Indication: ALCOHOL WITHDRAWAL SYNDROME
  22. HYDROMORPHONE HYDROCHLORIDE. [Suspect]
     Active Substance: HYDROMORPHONE HYDROCHLORIDE
     Indication: NEURALGIA
     Dosage: 40 MG/H, UP TO 60 MG/H WITH MAXIMUM PCA DOSING) VIA A RIGHT ANTERIOR CHEST WALL PORT
     Route: 042
  23. MORPHINE SULFATE. [Suspect]
     Active Substance: MORPHINE SULFATE
     Indication: NEURALGIA
     Dosage: 0.2 MG/H VIA A RECENTLY PLACED PUMP
     Route: 037
  24. ALBUTEROL. [Concomitant]
     Active Substance: ALBUTEROL
     Dosage: 0.083%/3 ML INITIATED VIA MASK

REACTIONS (1)
  - Neurotoxicity [Recovering/Resolving]
